FAERS Safety Report 20334870 (Version 5)
Quarter: 2023Q4

REPORT INFORMATION
  Report Type: Report from Study
  Country: JP (occurrence: JP)
  Receive Date: 20220114
  Receipt Date: 20231020
  Transmission Date: 20240110
  Serious: Yes (Death, Life-Threatening, Hospitalization, Other)
  Sender: FDA-Public Use
  Company Number: JP-ASTELLAS-2022JP000108

PATIENT
  Age: 87 Year
  Sex: Male
  Weight: 40.4 kg

DRUGS (10)
  1. ENFORTUMAB VEDOTIN [Suspect]
     Active Substance: ENFORTUMAB VEDOTIN
     Indication: Metastatic carcinoma of the bladder
     Route: 041
     Dates: start: 20211223, end: 20211230
  2. PEMBROLIZUMAB [Concomitant]
     Active Substance: PEMBROLIZUMAB
     Indication: Transitional cell carcinoma
     Dosage: UNK UNK, UNKNOWN FREQ.
     Route: 065
     Dates: start: 20210616, end: 20211222
  3. Myser [Concomitant]
     Indication: Erythema
     Dosage: UNK UNK, UNKNOWN FREQ.
     Route: 065
  4. Myser [Concomitant]
     Indication: Pruritus
     Dosage: 0.05 %, TWICE DAILY, EXTERNAL USE
     Route: 065
     Dates: start: 20220105, end: 20220114
  5. Myser [Concomitant]
     Indication: Drug eruption
  6. PETROLATUM [Concomitant]
     Active Substance: PETROLATUM
     Indication: Erythema
     Dosage: UNK UNK, UNKNOWN FREQ.
     Route: 065
  7. PETROLATUM [Concomitant]
     Active Substance: PETROLATUM
     Indication: Pruritus
  8. POLARAMINE [Concomitant]
     Active Substance: DEXCHLORPHENIRAMINE MALEATE
     Indication: Drug eruption
     Route: 065
     Dates: start: 20220105, end: 20220114
  9. FILGRASTIM [Concomitant]
     Active Substance: FILGRASTIM
     Indication: Neutrophil count decreased
     Route: 065
     Dates: start: 20220106, end: 20220110
  10. MEROPENEM [Concomitant]
     Active Substance: MEROPENEM
     Indication: Staphylococcal bacteraemia
     Dosage: 0.5 G, TWICE DAILY
     Route: 065
     Dates: end: 20220111

REACTIONS (6)
  - Staphylococcal bacteraemia [Fatal]
  - Neutrophil count decreased [Fatal]
  - Dermatitis bullous [Unknown]
  - Drug eruption [Unknown]
  - Erythema [Unknown]
  - Pruritus [Unknown]

NARRATIVE: CASE EVENT DATE: 20220101
